FAERS Safety Report 10070126 (Version 2)
Quarter: 2014Q2

REPORT INFORMATION
  Report Type: Report from Study
  Country: BE (occurrence: BE)
  Receive Date: 20140410
  Receipt Date: 20140410
  Transmission Date: 20141212
  Serious: Yes (Hospitalization)
  Sender: FDA-Public Use
  Company Number: BE-AMGEN-BELCT2014023260

PATIENT
  Age: 54 Year
  Sex: Male

DRUGS (5)
  1. ETANERCEPT [Suspect]
     Indication: RHEUMATOID ARTHRITIS
     Dosage: 25 MG, 2 TIMES/WK
     Route: 058
     Dates: start: 20051220, end: 200704
  2. ETANERCEPT [Suspect]
     Dosage: 25 MG, 2 TIMES/WK
     Route: 058
     Dates: start: 200705
  3. VOLTAREN                           /00372302/ [Concomitant]
     Dosage: UNK
     Route: 048
     Dates: start: 20021128
  4. LEDERTREXATE                       /00113801/ [Concomitant]
     Dosage: UNK
     Route: 030
     Dates: start: 20030317
  5. MEDROL                             /00049601/ [Concomitant]
     Dosage: UNK
     Route: 048
     Dates: start: 20030526

REACTIONS (2)
  - Bursitis [Recovered/Resolved]
  - Pyrexia [Recovered/Resolved]
